FAERS Safety Report 11793881 (Version 1)
Quarter: 2015Q4

REPORT INFORMATION
  Report Type: Spontaneous
  Country: JP (occurrence: JP)
  Receive Date: 20151202
  Receipt Date: 20151202
  Transmission Date: 20160305
  Serious: Yes (Other)
  Sender: FDA-Public Use
  Company Number: JP-SA-2015SA197411

PATIENT
  Age: 50 Year
  Sex: Female

DRUGS (6)
  1. FLUOROURACIL. [Concomitant]
     Active Substance: FLUOROURACIL
     Dosage: FOUR COURSES
  2. CYCLOPHOSPHAMIDE. [Concomitant]
     Active Substance: CYCLOPHOSPHAMIDE
     Dosage: 4 COURSES
  3. CAPECITABINE. [Suspect]
     Active Substance: CAPECITABINE
     Indication: BREAST CANCER
     Route: 048
     Dates: start: 20150204, end: 20150212
  4. DOCETAXEL. [Suspect]
     Active Substance: DOCETAXEL
     Indication: BREAST CANCER
     Route: 065
     Dates: start: 2014
  5. EPIRUBICIN [Concomitant]
     Active Substance: EPIRUBICIN
     Dosage: FOUE COURSES
  6. TAMOXIFEN [Concomitant]
     Active Substance: TAMOXIFEN
     Dates: start: 201410

REACTIONS (5)
  - Speech disorder [Recovering/Resolving]
  - Malaise [Recovering/Resolving]
  - Liver disorder [Unknown]
  - Leukoencephalopathy [Recovering/Resolving]
  - Dysarthria [Recovering/Resolving]

NARRATIVE: CASE EVENT DATE: 2014
